FAERS Safety Report 7350134-7 (Version None)
Quarter: 2011Q1

REPORT INFORMATION
  Report Type: 
  Country: None (occurrence: None)
  Receive Date: 20110314
  Receipt Date: 20110308
  Transmission Date: 20110831
  Serious: Yes (Hospitalization)
  Sender: FDA-Public Use
  Company Number: A0917172A

PATIENT
  Age: 72 Year
  Sex: Female

DRUGS (7)
  1. VENTOLIN [Suspect]
     Dosage: 2PUFF FOUR TIMES PER DAY
     Route: 055
  2. LISINOPRIL [Concomitant]
  3. CRESTOR [Concomitant]
  4. ADVAIR DISKUS 100/50 [Suspect]
     Indication: CHRONIC OBSTRUCTIVE PULMONARY DISEASE
     Dosage: 1PUFF TWICE PER DAY
     Route: 055
  5. COUMADIN [Concomitant]
  6. ASPIRIN [Concomitant]
  7. FLONASE [Suspect]
     Dosage: 1SPR TWICE PER DAY
     Route: 045

REACTIONS (3)
  - MYOCARDIAL INFARCTION [None]
  - PNEUMONIA [None]
  - EPISTAXIS [None]
